FAERS Safety Report 22183028 (Version 1)
Quarter: 2023Q2

REPORT INFORMATION
  Report Type: Spontaneous
  Country: US (occurrence: None)
  Receive Date: 20230406
  Receipt Date: 20230406
  Transmission Date: 20230722
  Serious: Yes (Hospitalization)
  Sender: FDA-Public Use
  Company Number: None

PATIENT
  Age: 83 Year
  Sex: Female
  Weight: 69.4 kg

DRUGS (11)
  1. LENALIDOMIDE [Suspect]
     Active Substance: LENALIDOMIDE
     Indication: Plasma cell myeloma
     Dosage: OTHER FREQUENCY : 21D ON 7D OFF;?
     Route: 048
     Dates: start: 20211107
  2. ACYCLOVIR [Concomitant]
     Active Substance: ACYCLOVIR
  3. MINERALS\VITAMINS [Concomitant]
     Active Substance: MINERALS\VITAMINS
  4. ASPIRIN [Concomitant]
     Active Substance: ASPIRIN
  5. BIOTIN [Concomitant]
     Active Substance: BIOTIN
  6. OMEPRAZOLE [Concomitant]
     Active Substance: OMEPRAZOLE
  7. PREDNISONE [Concomitant]
     Active Substance: PREDNISONE
  8. SULFAMETHOXAZOLE\TRIMETHOPRIM [Concomitant]
     Active Substance: SULFAMETHOXAZOLE\TRIMETHOPRIM
  9. VELCADE [Concomitant]
     Active Substance: BORTEZOMIB
  10. VITAMIN D [Concomitant]
     Active Substance: VITAMIN D NOS
  11. XGEVA [Concomitant]
     Active Substance: DENOSUMAB

REACTIONS (1)
  - Intestinal obstruction [None]
